FAERS Safety Report 9518513 (Version 1)
Quarter: 2013Q1

REPORT INFORMATION
  Report Type: Spontaneous
  Country: US (occurrence: None)
  Receive Date: 20130305
  Receipt Date: 20130305
  Transmission Date: 20140127
  Serious: Yes (Other)
  Sender: FDA-Public Use
  Company Number: 163-21880-11122023

PATIENT
  Age: 61 Year
  Sex: Female

DRUGS (1)
  1. REVLIMID (LENALIDOMIDE) [Suspect]
     Indication: PLASMA CELL MYELOMA
     Dosage: 25 MG, DAILY FOR 14 DAYS 7 DAYS
     Route: 048
     Dates: start: 201105, end: 2011

REACTIONS (4)
  - Haemoglobin decreased [None]
  - Red blood cell count decreased [None]
  - Haematocrit decreased [None]
  - White blood cell count decreased [None]
